FAERS Safety Report 5868090-7 (Version None)
Quarter: 2008Q3

REPORT INFORMATION
  Report Type: 
  Country: None (occurrence: None)
  Receive Date: 20080902
  Receipt Date: 20080414
  Transmission Date: 20090109
  Serious: No
  Sender: FDA-Public Use
  Company Number: US-ABBOTT-08P-163-0447352-00

PATIENT
  Sex: Male
  Weight: 38.59 kg

DRUGS (9)
  1. DEPAKOTE ER [Suspect]
     Indication: MIGRAINE
     Dosage: 250 MG IN AM/ 500 MG IN PM
     Route: 048
  2. DEPAKOTE ER [Suspect]
     Dosage: 250 MG IN AM + 250 MG IN PM
     Route: 048
  3. DEPAKOTE ER [Suspect]
     Route: 048
  4. DEPAKOTE ER [Suspect]
  5. BUDESONIDE [Concomitant]
     Indication: DRUG USE FOR UNKNOWN INDICATION
  6. BUDESONIDE [Concomitant]
  7. ALBUTEROL [Concomitant]
     Indication: DRUG USE FOR UNKNOWN INDICATION
  8. LANSOPRAZOLE [Concomitant]
     Indication: DRUG USE FOR UNKNOWN INDICATION
  9. IBUPROFEN TABLETS [Concomitant]
     Indication: HEADACHE

REACTIONS (2)
  - BRADYCARDIA [None]
  - DIZZINESS [None]
